FAERS Safety Report 9682732 (Version 1)
Quarter: 2013Q4

REPORT INFORMATION
  Report Type: Spontaneous
  Country: FR (occurrence: FR)
  Receive Date: 20131112
  Receipt Date: 20131112
  Transmission Date: 20140711
  Serious: Yes (Other)
  Sender: FDA-Public Use
  Company Number: FR-JNJFOC-20131103513

PATIENT
  Age: 9 Year
  Sex: Male
  Weight: 35 kg

DRUGS (2)
  1. CONCERTA LP [Suspect]
     Indication: DISTURBANCE IN ATTENTION
     Dosage: 18 MG
     Route: 048
     Dates: start: 20130912, end: 20130912
  2. CONCERTA LP [Suspect]
     Indication: DISTURBANCE IN ATTENTION
     Route: 048

REACTIONS (3)
  - Depressed level of consciousness [Recovered/Resolved]
  - Somnolence [Recovered/Resolved]
  - Extra dose administered [Unknown]
